FAERS Safety Report 17826320 (Version 1)
Quarter: 2020Q2

REPORT INFORMATION
  Report Type: Spontaneous
  Country: PL (occurrence: PL)
  Receive Date: 20200527
  Receipt Date: 20200527
  Transmission Date: 20200714
  Serious: Yes (Other)
  Sender: FDA-Public Use
  Company Number: PL-SUN PHARMACEUTICAL INDUSTRIES LTD-2020R1-247958

PATIENT
  Weight: 2.12 kg

DRUGS (1)
  1. PREDNISONE. [Suspect]
     Active Substance: PREDNISONE
     Indication: TAKAYASU^S ARTERITIS
     Dosage: 15 MILLIGRAM, DAILY
     Route: 064

REACTIONS (3)
  - Foetal exposure during pregnancy [Unknown]
  - Hyperbilirubinaemia neonatal [Unknown]
  - Low birth weight baby [Unknown]
